FAERS Safety Report 15877603 (Version 5)
Quarter: 2020Q2

REPORT INFORMATION
  Report Type: Report from Study
  Country: US (occurrence: US)
  Receive Date: 20190128
  Receipt Date: 20200415
  Transmission Date: 20200713
  Serious: Yes (Hospitalization, Other)
  Sender: FDA-Public Use
  Company Number: PHEH2019US003390

PATIENT
  Sex: Female

DRUGS (1)
  1. ENTRESTO [Suspect]
     Active Substance: SACUBITRIL\VALSARTAN
     Indication: CARDIAC FAILURE CHRONIC
     Dosage: UNK
     Route: 048

REACTIONS (8)
  - Cardiac failure [Unknown]
  - Dyspnoea [Unknown]
  - Malaise [Unknown]
  - Cardiac disorder [Unknown]
  - Urinary tract infection [Unknown]
  - Viral infection [Unknown]
  - Cough [Unknown]
  - Influenza [Unknown]
